FAERS Safety Report 9472226 (Version 2)
Quarter: 2013Q3

REPORT INFORMATION
  Report Type: Report from Study
  Country: GB (occurrence: GB)
  Receive Date: 20130823
  Receipt Date: 20130823
  Transmission Date: 20140515
  Serious: Yes (Other)
  Sender: FDA-Public Use
  Company Number: GB-JNJFOC-20130616932

PATIENT
  Age: 47 Year
  Sex: Female

DRUGS (4)
  1. SIMPONI [Suspect]
     Indication: PSORIATIC ARTHROPATHY
     Route: 058
     Dates: start: 20130211
  2. SIMPONI [Suspect]
     Indication: PSORIATIC ARTHROPATHY
     Dosage: 5TH GOLIMUMAB INJECTION
     Route: 058
     Dates: start: 20130611, end: 20130628
  3. SIMPONI [Suspect]
     Indication: PSORIATIC ARTHROPATHY
     Dosage: 4TH GOLIMUMAB INJECTION
     Route: 058
     Dates: start: 201305
  4. OMEPRAZOLE [Concomitant]
     Route: 065

REACTIONS (6)
  - Vasculitis [Recovering/Resolving]
  - Immune system disorder [Unknown]
  - Local swelling [Unknown]
  - Platelet count decreased [Unknown]
  - Neutrophil count decreased [Recovering/Resolving]
  - Fatigue [Recovering/Resolving]
